FAERS Safety Report 12908158 (Version 1)
Quarter: 2016Q4

REPORT INFORMATION
  Report Type: Spontaneous
  Country: BE (occurrence: BE)
  Receive Date: 20161103
  Receipt Date: 20161103
  Transmission Date: 20170207
  Serious: Yes (Death, Life-Threatening, Hospitalization, Other)
  Sender: FDA-Public Use
  Company Number: BE-MYLANLABS-2016M1047157

PATIENT

DRUGS (4)
  1. METHYLPREDNISOLONE. [Suspect]
     Active Substance: METHYLPREDNISOLONE
     Indication: PERICARDITIS LUPUS
     Route: 065
  2. AZATHIOPRINE. [Suspect]
     Active Substance: AZATHIOPRINE
     Indication: PERICARDITIS LUPUS
     Route: 065
  3. PREDNISOLONE. [Suspect]
     Active Substance: PREDNISOLONE
     Indication: SYSTEMIC LUPUS ERYTHEMATOSUS
     Dosage: LOW DOSE
     Route: 048
  4. MOXIFLOXACIN. [Concomitant]
     Active Substance: MOXIFLOXACIN
     Indication: PNEUMONIA
     Route: 065

REACTIONS (10)
  - Mucormycosis [Unknown]
  - Pleural effusion [Unknown]
  - Lactic acidosis [Unknown]
  - Pupils unequal [Unknown]
  - Multiple organ dysfunction syndrome [Fatal]
  - Cardiomegaly [Unknown]
  - Septic shock [Unknown]
  - Nocardiosis [Unknown]
  - Lung abscess [Unknown]
  - Disseminated intravascular coagulation [Unknown]
